FAERS Safety Report 10912397 (Version 1)
Quarter: 2015Q1

REPORT INFORMATION
  Report Type: Spontaneous
  Country: JP (occurrence: None)
  Receive Date: 20150310
  Receipt Date: 20150310
  Transmission Date: 20150721
  Serious: Yes (Other)
  Sender: FDA-Public Use
  Company Number: JP-20150028

PATIENT
  Age: 77 Year
  Sex: Male

DRUGS (3)
  1. LIPIODOL ULTRA-FLUIDE [Suspect]
     Active Substance: ETHIODIZED OIL
     Indication: THERAPEUTIC EMBOLISATION
     Route: 013
     Dates: start: 20080922, end: 20080922
  2. EPIRUBICIN [Concomitant]
     Active Substance: EPIRUBICIN
  3. ABSORBABLE GELATIN SPONGE [Concomitant]

REACTIONS (5)
  - Product use issue [None]
  - Pneumatosis [None]
  - Pyrexia [None]
  - Liver abscess [None]
  - Klebsiella infection [None]
